FAERS Safety Report 7471269-4 (Version None)
Quarter: 2011Q2

REPORT INFORMATION
  Report Type: 
  Country: None (occurrence: None)
  Receive Date: 20110510
  Receipt Date: 20110505
  Transmission Date: 20111010
  Serious: Yes (Hospitalization)
  Sender: FDA-Public Use
  Company Number: DE-ABBOTT-11P-062-0723934-00

PATIENT
  Age: 73 Year
  Sex: Male
  Weight: 84 kg

DRUGS (4)
  1. CINACALCET HYDROCHLORIDE [Concomitant]
     Dates: start: 20100514
  2. ZEMPLAR [Suspect]
     Indication: HYPERPARATHYROIDISM SECONDARY
     Dosage: 1 X 5 MICROGRAM PER WEEK
     Route: 042
     Dates: start: 20090907, end: 20101126
  3. ZEMPLAR [Suspect]
     Dosage: 2 X 5 MICROGRAM PER WEEK
     Route: 042
     Dates: start: 20101127
  4. CINACALCET HYDROCHLORIDE [Concomitant]
     Indication: HYPERPARATHYROIDISM
     Dates: start: 20100122, end: 20100322

REACTIONS (1)
  - GANGRENE [None]
